FAERS Safety Report 11186556 (Version 2)
Quarter: 2015Q3

REPORT INFORMATION
  Report Type: Report from Study
  Country: EG (occurrence: EG)
  Receive Date: 20150613
  Receipt Date: 20150710
  Transmission Date: 20151125
  Serious: Yes (Other)
  Sender: FDA-Public Use
  Company Number: PHHY2015EG069988

PATIENT
  Age: 9 Year
  Sex: Male

DRUGS (2)
  1. ICL670A [Suspect]
     Active Substance: DEFERASIROX
     Dosage: 500 MG, QD (REDUCED BY 50 PER CENT, 20MG/KG/DAY)
     Route: 065
     Dates: start: 20141110
  2. ICL670A [Suspect]
     Active Substance: DEFERASIROX
     Indication: HAEMOSIDEROSIS
     Route: 065
     Dates: start: 20120502

REACTIONS (1)
  - Deafness neurosensory [Recovering/Resolving]

NARRATIVE: CASE EVENT DATE: 20140825
